FAERS Safety Report 12706221 (Version 3)
Quarter: 2017Q1

REPORT INFORMATION
  Report Type: Spontaneous
  Country: US (occurrence: US)
  Receive Date: 20160901
  Receipt Date: 20170303
  Transmission Date: 20170428
  Serious: No
  Sender: FDA-Public Use
  Company Number: US-JAZZ-2016-US-007937

PATIENT
  Sex: Female

DRUGS (16)
  1. IMITREX [Concomitant]
     Active Substance: SUMATRIPTAN SUCCINATE
  2. ADVIL [Concomitant]
     Active Substance: IBUPROFEN
  3. XYREM [Suspect]
     Active Substance: SODIUM OXYBATE
     Dosage: DOSE ADJUSTMENTS
     Route: 048
  4. XYREM [Suspect]
     Active Substance: SODIUM OXYBATE
     Dosage: 4 G, BID
     Route: 048
     Dates: start: 201604
  5. ANAFRANIL [Suspect]
     Active Substance: CLOMIPRAMINE HYDROCHLORIDE
     Indication: ANXIETY
  6. ATIVAN [Concomitant]
     Active Substance: LORAZEPAM
  7. LEVOTHYROXINE. [Concomitant]
     Active Substance: LEVOTHYROXINE
  8. PROPRANOLOL [Concomitant]
     Active Substance: PROPRANOLOL HYDROCHLORIDE
  9. PROTONIX [Concomitant]
     Active Substance: PANTOPRAZOLE SODIUM
  10. PROTRIPTYLINE HCL [Concomitant]
  11. XYREM [Suspect]
     Active Substance: SODIUM OXYBATE
     Indication: NARCOLEPSY
     Dosage: 0.75 G, BID
     Route: 048
     Dates: start: 201602, end: 201603
  12. INDERAL [Concomitant]
     Active Substance: PROPRANOLOL HYDROCHLORIDE
  13. XYREM [Suspect]
     Active Substance: SODIUM OXYBATE
     Dosage: 3 G, BID
     Route: 048
     Dates: start: 201604, end: 201604
  14. NUVIGIL [Suspect]
     Active Substance: ARMODAFINIL
     Indication: PRODUCT USED FOR UNKNOWN INDICATION
  15. PROMETHAZINE [Concomitant]
     Active Substance: PROMETHAZINE\PROMETHAZINE HYDROCHLORIDE
  16. PRISTIQ EXTENDED-RELEASE [Concomitant]
     Active Substance: DESVENLAFAXINE SUCCINATE

REACTIONS (2)
  - Drug ineffective [Unknown]
  - Anxiety [Not Recovered/Not Resolved]
